FAERS Safety Report 5274509-5 (Version None)
Quarter: 2007Q1

REPORT INFORMATION
  Report Type: 
  Country: None (occurrence: None)
  Receive Date: 20070320
  Receipt Date: 20070308
  Transmission Date: 20070707
  Serious: Yes (Other)
  Sender: FDA-Public Use
  Company Number: US-GDP-0714586

PATIENT
  Sex: Female

DRUGS (1)
  1. METROGEL [Suspect]
     Dosage: 1 APP QD TP
     Route: 061
     Dates: start: 20030401, end: 20040901

REACTIONS (1)
  - LYMPHOMA [None]
